FAERS Safety Report 6822503-2 (Version None)
Quarter: 2010Q3

REPORT INFORMATION
  Report Type: 
  Country: None (occurrence: None)
  Receive Date: 20100707
  Receipt Date: 20100707
  Transmission Date: 20110219
  Serious: No
  Sender: FDA-Public Use
  Company Number: None

PATIENT
  Age: 51 Year
  Sex: Female
  Weight: 58.514 kg

DRUGS (1)
  1. ACTONEL [Suspect]
     Indication: OSTEOPENIA
     Dosage: 1 MONTHLY PO, ONLY ONE DOSE TAKEN
     Route: 048
     Dates: start: 20100405, end: 20100405

REACTIONS (3)
  - ARTHRALGIA [None]
  - INFLUENZA LIKE ILLNESS [None]
  - PARAESTHESIA [None]
